FAERS Safety Report 15361908 (Version 1)
Quarter: 2018Q4

REPORT INFORMATION
  Report Type: Spontaneous
  Country: US (occurrence: US)
  Receive Date: 20180907
  Receipt Date: 20180907
  Transmission Date: 20190204
  Serious: Yes (Hospitalization, Other)
  Sender: FDA-Public Use
  Company Number: US-VYERA PHARMACEUTICALS, LLC-2018VYE00032

PATIENT
  Age: 33 Year
  Sex: Female
  Weight: 49.89 kg

DRUGS (14)
  1. PHENERGAN [Concomitant]
     Active Substance: PROMETHAZINE HYDROCHLORIDE
  2. RANITIDINE. [Concomitant]
     Active Substance: RANITIDINE
  3. AZITHROMYCIN ANHYDROUS. [Concomitant]
     Active Substance: AZITHROMYCIN ANHYDROUS
     Dosage: UNK
  4. REYATAZ [Concomitant]
     Active Substance: ATAZANAVIR SULFATE
  5. FEROSUL [Concomitant]
     Dosage: UNK
  6. MEGESTROL [Concomitant]
     Active Substance: MEGESTROL
  7. TRUVADA [Concomitant]
     Active Substance: EMTRICITABINE\TENOFOVIR DISOPROXIL FUMARATE
  8. KEPPRA [Concomitant]
     Active Substance: LEVETIRACETAM
  9. SULFADIAZINE. [Concomitant]
     Active Substance: SULFADIAZINE
  10. DARAPRIM [Suspect]
     Active Substance: PYRIMETHAMINE
     Indication: TOXOPLASMOSIS
     Dosage: 50 MG, 1X/DAY
     Route: 048
     Dates: start: 20180728
  11. COLACE [Concomitant]
     Active Substance: DOCUSATE SODIUM
  12. FOLIC ACID. [Concomitant]
     Active Substance: FOLIC ACID
  13. LEUCOVORIN CALCIUM. [Concomitant]
     Active Substance: LEUCOVORIN CALCIUM
  14. NORVIR [Concomitant]
     Active Substance: RITONAVIR

REACTIONS (9)
  - Hepatic infection [Unknown]
  - Dyspnoea [Not Recovered/Not Resolved]
  - Drug hypersensitivity [Not Recovered/Not Resolved]
  - Thermal burn [Not Recovered/Not Resolved]
  - Eye swelling [Unknown]
  - Pharyngeal oedema [Unknown]
  - Swelling [Unknown]
  - Ear swelling [Unknown]
  - Lip swelling [Unknown]

NARRATIVE: CASE EVENT DATE: 201808
